FAERS Safety Report 22202832 (Version 2)
Quarter: 2023Q4

REPORT INFORMATION
  Report Type: Spontaneous
  Country: US (occurrence: US)
  Receive Date: 20230412
  Receipt Date: 20231130
  Transmission Date: 20240109
  Serious: Yes (Other)
  Sender: FDA-Public Use
  Company Number: US-PFIZER INC-PV202300066168

PATIENT
  Age: 61 Year
  Sex: Female
  Weight: 110 kg

DRUGS (2)
  1. XELJANZ XR [Suspect]
     Active Substance: TOFACITINIB CITRATE
     Dosage: 22 MG, DAILY
  2. XELJANZ XR [Suspect]
     Active Substance: TOFACITINIB CITRATE
     Dosage: 11 MG, 2X/DAY

REACTIONS (5)
  - Haematochezia [Unknown]
  - Drug hypersensitivity [Unknown]
  - Mental disorder [Unknown]
  - Frequent bowel movements [Unknown]
  - Off label use [Unknown]
